FAERS Safety Report 22203421 (Version 1)
Quarter: 2023Q2

REPORT INFORMATION
  Report Type: Spontaneous
  Country: JP (occurrence: JP)
  Receive Date: 20230412
  Receipt Date: 20230412
  Transmission Date: 20230722
  Serious: No
  Sender: FDA-Public Use
  Company Number: JP-APIL-2311162US

PATIENT
  Age: 4 Decade
  Sex: Male

DRUGS (4)
  1. ASENAPINE MALEATE [Suspect]
     Active Substance: ASENAPINE MALEATE
     Indication: Schizophrenia
     Route: 060
  2. BLONANSERIN [Concomitant]
     Active Substance: BLONANSERIN
  3. PALIPERIDONE [Concomitant]
     Active Substance: PALIPERIDONE
  4. ARIPIPRAZOLE [Concomitant]
     Active Substance: ARIPIPRAZOLE

REACTIONS (1)
  - Pruritus [Unknown]
